FAERS Safety Report 6264302-9 (Version None)
Quarter: 2009Q3

REPORT INFORMATION
  Report Type: 
  Country: None (occurrence: None)
  Receive Date: 20090710
  Receipt Date: 20090702
  Transmission Date: 20100115
  Serious: Yes (Other)
  Sender: FDA-Public Use
  Company Number: A0773237A

PATIENT
  Age: 62 Year
  Sex: Female

DRUGS (2)
  1. ADVAIR HFA [Suspect]
     Indication: DRUG USE FOR UNKNOWN INDICATION
     Route: 055
     Dates: start: 20080401
  2. NO CONCURRENT MEDICATION [Concomitant]

REACTIONS (4)
  - APHASIA [None]
  - APHONIA [None]
  - LOSS OF EMPLOYMENT [None]
  - OROPHARYNGEAL PAIN [None]
